FAERS Safety Report 4768812-2 (Version None)
Quarter: 2005Q3

REPORT INFORMATION
  Report Type: 
  Country: None (occurrence: None)
  Receive Date: 20050914
  Receipt Date: 20050901
  Transmission Date: 20060218
  Serious: Yes (Life-Threatening, Hospitalization)
  Sender: FDA-Public Use
  Company Number: HQWYE496723FEB05

PATIENT
  Age: 61 Year
  Sex: Male

DRUGS (1)
  1. MYLOTARG [Suspect]
     Indication: ACUTE MYELOID LEUKAEMIA
     Dosage: 11 MG 1X PER 1 DAY, INTRAVENOUSQ
     Route: 042
     Dates: start: 20050116, end: 20050116

REACTIONS (6)
  - CREPITATIONS [None]
  - HAEMOPTYSIS [None]
  - HEART RATE INCREASED [None]
  - RESPIRATORY FAILURE [None]
  - TACHYCARDIA [None]
  - TACHYPNOEA [None]
